FAERS Safety Report 6620280-1 (Version None)
Quarter: 2010Q1

REPORT INFORMATION
  Report Type: 
  Country: None (occurrence: None)
  Receive Date: 20100308
  Receipt Date: 20100308
  Transmission Date: 20100710
  Serious: Yes (Life-Threatening, Hospitalization)
  Sender: FDA-Public Use
  Company Number: None

PATIENT
  Sex: Female
  Weight: 72.3 kg

DRUGS (1)
  1. PROVIGIL [Suspect]
     Indication: SOMNOLENCE
     Dosage: PROVIGIL 200MG 1/2 QAM PO
     Route: 048
     Dates: start: 20040101

REACTIONS (4)
  - ARTERIOSPASM CORONARY [None]
  - MYOCARDIAL INFARCTION [None]
  - PRINZMETAL ANGINA [None]
  - STRESS [None]
